FAERS Safety Report 9340335 (Version 1)
Quarter: 2013Q2

REPORT INFORMATION
  Report Type: Spontaneous
  Country: GB (occurrence: None)
  Receive Date: 20130605
  Receipt Date: 20130605
  Transmission Date: 20140414
  Serious: Yes (Other)
  Sender: FDA-Public Use
  Company Number: AUR-APL-2013-04547

PATIENT
  Age: 66 Year
  Sex: Male

DRUGS (6)
  1. CIPROFLOXACIN (CIPROFLOXACIN) [Suspect]
     Indication: SEPSIS
     Dosage: 1000 MG (500 MG,2 IN 1 D)
     Dates: start: 20130216, end: 201303
  2. ATENOLOL (ATENOLOL) [Concomitant]
  3. CO-CODAMOL (PANADEINE CO) [Concomitant]
  4. LORATIDINE [Concomitant]
  5. ONE-ALPHA (ALFACALCIDOL) [Concomitant]
  6. SODIUM BICARBONATE (SODIUM BICARBONATE) [Concomitant]

REACTIONS (3)
  - Headache [None]
  - Balance disorder [None]
  - Hearing impaired [None]
